FAERS Safety Report 7393592-4 (Version None)
Quarter: 2011Q2

REPORT INFORMATION
  Report Type: 
  Country: None (occurrence: None)
  Receive Date: 20110405
  Receipt Date: 20110331
  Transmission Date: 20111010
  Serious: No
  Sender: FDA-Public Use
  Company Number: US-PFIZER INC-2011072658

PATIENT
  Sex: Male
  Weight: 81.633 kg

DRUGS (4)
  1. PRISTIQ [Suspect]
     Indication: DEPRESSION
     Dosage: 100 MG, 1X/DAY
     Route: 048
     Dates: start: 20110310
  2. ZANAFLEX [Concomitant]
     Indication: CEREBRAL PALSY
     Dosage: UNK, 3X/DAY
     Route: 048
  3. KLONOPIN [Concomitant]
     Indication: CEREBRAL PALSY
     Dosage: 2 MG, 3X/DAY
  4. ABILIFY [Concomitant]
     Dosage: UNK

REACTIONS (3)
  - SPEECH DISORDER [None]
  - FATIGUE [None]
  - TREMOR [None]
